FAERS Safety Report 4286541-9 (Version None)
Quarter: 2004Q1

REPORT INFORMATION
  Report Type: 
  Country: None (occurrence: None)
  Receive Date: 20040205
  Receipt Date: 20040205
  Transmission Date: 20041129
  Serious: No
  Sender: FDA-Public Use
  Company Number: None

PATIENT

DRUGS (1)
  1. CORICIDIN CHEST CONGESTION + COUGH (DEXTROMETHORPHAN) CAPSULES [Suspect]
     Indication: COUGH
     Dosage: ORAL
     Route: 048

REACTIONS (4)
  - COUGH [None]
  - HYPERTENSION [None]
  - INTENTIONAL OVERDOSE [None]
  - RESPIRATORY TRACT CONGESTION [None]
